FAERS Safety Report 18118507 (Version 2)
Quarter: 2022Q3

REPORT INFORMATION
  Report Type: Spontaneous
  Country: JP (occurrence: JP)
  Receive Date: 20200806
  Receipt Date: 20220713
  Transmission Date: 20221026
  Serious: Yes (Other)
  Sender: FDA-Public Use
  Company Number: JP-GSKNCCC-CASE-01001909_AE-32299

PATIENT

DRUGS (3)
  1. SERETIDE [Suspect]
     Active Substance: FLUTICASONE PROPIONATE\SALMETEROL XINAFOATE
     Indication: Asthma
     Dosage: 500 ?G, 1D
     Route: 055
  2. CLENBUTEROL HYDROCHLORIDE [Concomitant]
     Active Substance: CLENBUTEROL HYDROCHLORIDE
     Dosage: UNK
  3. ITRIZOLE (ITRACONAZOLE) [Concomitant]
     Indication: Pneumonia fungal
     Dosage: UNK
     Dates: start: 2020

REACTIONS (2)
  - Pneumonia fungal [Unknown]
  - Hypokalaemia [Unknown]

NARRATIVE: CASE EVENT DATE: 20200101
